FAERS Safety Report 6416020-1 (Version None)
Quarter: 2009Q4

REPORT INFORMATION
  Report Type: 
  Country: None (occurrence: None)
  Receive Date: 20091027
  Receipt Date: 20091015
  Transmission Date: 20100525
  Serious: Yes (Hospitalization)
  Sender: FDA-Public Use
  Company Number: FR-AVENTIS-200913835FR

PATIENT
  Age: 84 Year
  Sex: Male

DRUGS (12)
  1. LOVENOX [Suspect]
     Indication: ATRIAL FIBRILLATION
     Route: 058
     Dates: start: 20090811, end: 20090830
  2. TIENAM [Suspect]
     Route: 042
     Dates: start: 20090810, end: 20090824
  3. KEPPRA [Concomitant]
     Indication: DRUG USE FOR UNKNOWN INDICATION
  4. HEMIGOXINE [Concomitant]
     Route: 048
  5. TAHOR [Concomitant]
     Route: 048
  6. OMEPRAZOLE [Concomitant]
     Indication: DRUG USE FOR UNKNOWN INDICATION
  7. PREVISCAN                          /00789001/ [Concomitant]
     Indication: ATRIAL FIBRILLATION
     Route: 048
     Dates: end: 20090801
  8. CEFTRIAXONE MERCK [Concomitant]
     Indication: PYELONEPHRITIS
     Dates: start: 20090806, end: 20090809
  9. FLAGYL [Concomitant]
     Indication: PYELONEPHRITIS
     Dates: start: 20090806, end: 20090809
  10. FUNGIZONE [Concomitant]
     Indication: PYELONEPHRITIS
     Dates: start: 20090806, end: 20090809
  11. GENTAMICINE [Concomitant]
     Dates: start: 20090809, end: 20090810
  12. INVANZ [Concomitant]
     Route: 042
     Dates: start: 20090809, end: 20090810

REACTIONS (1)
  - NEUTROPENIA [None]
